FAERS Safety Report 14889933 (Version 2)
Quarter: 2018Q2

REPORT INFORMATION
  Report Type: Spontaneous
  Country: US (occurrence: US)
  Receive Date: 20180514
  Receipt Date: 20180604
  Transmission Date: 20180711
  Serious: Yes (Hospitalization)
  Sender: FDA-Public Use
  Company Number: US-TEVA-2018-US-890275

PATIENT
  Sex: Female
  Weight: 54 kg

DRUGS (4)
  1. SYNRIBO [Suspect]
     Active Substance: OMACETAXINE MEPESUCCINATE
     Indication: LEUKAEMIA
     Dosage: 1.73 TWICE A DAY
     Route: 065
     Dates: start: 201604
  2. PHENERGAN [Concomitant]
     Active Substance: PROMETHAZINE HYDROCHLORIDE
     Indication: NAUSEA
     Route: 065
  3. TYLENOL [Concomitant]
     Active Substance: ACETAMINOPHEN
     Indication: HEADACHE
     Route: 065
  4. TYLENOL [Concomitant]
     Active Substance: ACETAMINOPHEN
     Indication: PAIN

REACTIONS (8)
  - Platelet count decreased [Unknown]
  - Abdominal pain [Unknown]
  - Drug dose omission [Unknown]
  - White blood cell count decreased [Unknown]
  - Cough [Unknown]
  - Splenomegaly [Unknown]
  - Nausea [Unknown]
  - Pyrexia [Unknown]
